FAERS Safety Report 7987608-1 (Version None)
Quarter: 2011Q4

REPORT INFORMATION
  Report Type: 
  Country: None (occurrence: None)
  Receive Date: 20111216
  Receipt Date: 20110414
  Transmission Date: 20120403
  Serious: Yes (Other)
  Sender: FDA-Public Use
  Company Number: US-BRISTOL-MYERS SQUIBB COMPANY-12859443

PATIENT
  Age: 40 Year
  Sex: Female
  Weight: 83 kg

DRUGS (9)
  1. ABILIFY [Suspect]
     Indication: BIPOLAR DISORDER
     Dosage: 20MG A DAY
     Route: 048
     Dates: start: 20020501
  2. DEPO-PROVERA [Concomitant]
  3. DITROPAN [Concomitant]
     Indication: URINARY INCONTINENCE
  4. ZANAFLEX [Concomitant]
     Indication: MUSCLE SPASMS
  5. ACETAMINOPHEN [Concomitant]
  6. CALCIUM [Concomitant]
  7. FISH OIL [Concomitant]
  8. ABILIFY [Suspect]
     Indication: BIPOLAR I DISORDER
     Dosage: 20MG A DAY
     Route: 048
     Dates: start: 20020501
  9. KLONOPIN [Concomitant]
     Dosage: AS NEEDED

REACTIONS (11)
  - URINARY INCONTINENCE [None]
  - PREGNANCY [None]
  - DIABETES MELLITUS [None]
  - ATRIAL FIBRILLATION [None]
  - CONSTIPATION [None]
  - HYPERTENSION [None]
  - SOMNOLENCE [None]
  - POLLAKIURIA [None]
  - BLOOD PROLACTIN INCREASED [None]
  - BLADDER SPASM [None]
  - RESTLESS LEGS SYNDROME [None]
